FAERS Safety Report 20003189 (Version 7)
Quarter: 2022Q1

REPORT INFORMATION
  Report Type: Spontaneous
  Country: US (occurrence: US)
  Receive Date: 20211027
  Receipt Date: 20220103
  Transmission Date: 20220423
  Serious: No
  Sender: FDA-Public Use
  Company Number: US-KARYOPHARM-2021KPT001324

PATIENT

DRUGS (10)
  1. XPOVIO [Suspect]
     Active Substance: SELINEXOR
     Indication: Plasma cell myeloma
     Dosage: 40 MG, WEEKLY FOR 3 WEEKS
     Route: 048
     Dates: start: 20211004, end: 202112
  2. KYPROLIS [Concomitant]
     Active Substance: CARFILZOMIB
     Indication: Plasma cell myeloma
  3. DARATUMUMAB [Concomitant]
     Active Substance: DARATUMUMAB
     Indication: Plasma cell myeloma
  4. POMALYST [Concomitant]
     Active Substance: POMALIDOMIDE
     Indication: Plasma cell myeloma
  5. METOPROLOL [Concomitant]
     Active Substance: METOPROLOL
     Dosage: UNK
  6. METOPROLOL [Concomitant]
     Active Substance: METOPROLOL
     Dosage: 100 MG, QD
  7. ISOSORBIDE [Concomitant]
     Active Substance: ISOSORBIDE
  8. FAMOTIDINE [Concomitant]
     Active Substance: FAMOTIDINE
     Dosage: 20 MG, QD
  9. METHYLPREDNISOLONE [Concomitant]
     Active Substance: METHYLPREDNISOLONE
     Dosage: 20 MG, QD
  10. ELIQUIS [Concomitant]
     Active Substance: APIXABAN
     Dosage: 5 MG, QD
     Route: 048
     Dates: start: 20210702

REACTIONS (7)
  - Muscle spasms [Not Recovered/Not Resolved]
  - Poor quality sleep [Not Recovered/Not Resolved]
  - Plasma cell myeloma [Unknown]
  - Pancytopenia [Unknown]
  - Diarrhoea [Not Recovered/Not Resolved]
  - Fatigue [Not Recovered/Not Resolved]
  - Dyspnoea [Unknown]

NARRATIVE: CASE EVENT DATE: 20211001
